FAERS Safety Report 7378711-8 (Version None)
Quarter: 2011Q1

REPORT INFORMATION
  Report Type: 
  Country: None (occurrence: None)
  Receive Date: 20110317
  Receipt Date: 20110309
  Transmission Date: 20110831
  Serious: Yes (Hospitalization)
  Sender: FDA-Public Use
  Company Number: 2011SP010778

PATIENT
  Age: 73 Year
  Sex: Male

DRUGS (8)
  1. MIRTAZAPINE [Suspect]
     Indication: ANXIETY
     Dosage: 15 MG; QD; PO
     Route: 048
     Dates: start: 20101225, end: 20101229
  2. PERMIXON [Concomitant]
  3. BISOPROLOL [Concomitant]
  4. ALPRAZOLAM [Suspect]
     Indication: ANXIETY
     Dosage: 0.25 MG; PO, 0.5 MG; PO
     Route: 048
     Dates: start: 20101229, end: 20110101
  5. ALPRAZOLAM [Suspect]
     Indication: ANXIETY
     Dosage: 0.25 MG; PO, 0.5 MG; PO
     Route: 048
     Dates: start: 20101210, end: 20101228
  6. LERCAN [Concomitant]
  7. OMEPRAZOLE [Concomitant]
  8. VOLTAREN [Concomitant]

REACTIONS (4)
  - GENERALISED ERYTHEMA [None]
  - TOXIC SKIN ERUPTION [None]
  - EOSINOPHILIA [None]
  - RASH MACULO-PAPULAR [None]
